FAERS Safety Report 9013326 (Version 2)
Quarter: 2013Q1

REPORT INFORMATION
  Report Type: Spontaneous
  Country: GB (occurrence: GB)
  Receive Date: 20130115
  Receipt Date: 20130329
  Transmission Date: 20140127
  Serious: Yes (Death, Other)
  Sender: FDA-Public Use
  Company Number: GB-009507513-1301GBR003393

PATIENT
  Age: 77 Year
  Sex: Male

DRUGS (1)
  1. ONCOTICE [Suspect]
     Indication: BLADDER TRANSITIONAL CELL CARCINOMA
     Dosage: UNK
     Dates: start: 20110207, end: 20110321

REACTIONS (2)
  - Aorto-duodenal fistula [Fatal]
  - Aortic aneurysm [Not Recovered/Not Resolved]
